FAERS Safety Report 14825216 (Version 2)
Quarter: 2018Q2

REPORT INFORMATION
  Report Type: Report from Study
  Country: IT (occurrence: IT)
  Receive Date: 20180430
  Receipt Date: 20180628
  Transmission Date: 20180711
  Serious: Yes (Hospitalization)
  Sender: FDA-Public Use
  Company Number: IT-ROCHE-2111617

PATIENT
  Age: 47 Year
  Sex: Female

DRUGS (10)
  1. PERTUZUMAB. [Suspect]
     Active Substance: PERTUZUMAB
     Indication: BREAST CANCER
     Route: 042
     Dates: start: 20160206, end: 20160209
  2. TRASTUZUMAB. [Suspect]
     Active Substance: TRASTUZUMAB
     Indication: BREAST CANCER
     Route: 042
     Dates: start: 20160209, end: 20160209
  3. TRIATEC HCT [Concomitant]
     Active Substance: HYDROCHLOROTHIAZIDE\RAMIPRIL
     Dosage: STRENGTH 5 MG + 25 MG
     Route: 048
  4. DELTACORTENE [Concomitant]
     Active Substance: PREDNISONE
     Route: 048
  5. ATEM [Concomitant]
     Active Substance: IPRATROPIUM BROMIDE
     Dosage: STRENGTH 0.5 MG/ 2 ML
     Route: 055
  6. CLENIL (ITALY) [Concomitant]
     Route: 055
  7. LIMPIDEX [Concomitant]
     Active Substance: LANSOPRAZOLE
     Route: 048
  8. METFORMIN [Concomitant]
     Active Substance: METFORMIN HYDROCHLORIDE
     Route: 048
  9. NATECAL D3 [Concomitant]
     Active Substance: CALCIUM CARBONATE\CHOLECALCIFEROL
     Dosage: STRENGTH 600 MG + 400 U.I.
     Route: 048
  10. CORLENTOR [Concomitant]
     Active Substance: IVABRADINE HYDROCHLORIDE
     Route: 048

REACTIONS (4)
  - Erythema [Recovering/Resolving]
  - Bronchospasm [Recovering/Resolving]
  - Cough [Recovering/Resolving]
  - Dyspnoea [Recovering/Resolving]

NARRATIVE: CASE EVENT DATE: 20160209
